FAERS Safety Report 4425486-8 (Version None)
Quarter: 2004Q3

REPORT INFORMATION
  Report Type: 
  Country: None (occurrence: None)
  Receive Date: 20040810
  Receipt Date: 20040728
  Transmission Date: 20050211
  Serious: Yes (Other)
  Sender: FDA-Public Use
  Company Number: 2004051236

PATIENT
  Age: 45 Year
  Sex: Male

DRUGS (3)
  1. ZOLOFT [Suspect]
     Indication: ILL-DEFINED DISORDER
     Dosage: (100 MG), ORAL
     Route: 048
     Dates: start: 20040301, end: 20040401
  2. BENAZEPRIL HCL [Concomitant]
  3. ATORVASTATIN (ATORVASTATIN) [Concomitant]

REACTIONS (2)
  - DIPLOPIA [None]
  - VITREOUS DISORDER [None]
